FAERS Safety Report 10655632 (Version 3)
Quarter: 2015Q1

REPORT INFORMATION
  Report Type: Report from Study
  Country: JP (occurrence: JP)
  Receive Date: 20141216
  Receipt Date: 20150311
  Transmission Date: 20150720
  Serious: Yes (Other)
  Sender: FDA-Public Use
  Company Number: JP-GLAXOSMITHKLINE-JP2014JPN032885

PATIENT
  Age: 44 Year
  Sex: Female
  Weight: 65 kg

DRUGS (2)
  1. ROPION [Concomitant]
     Active Substance: FLURBIPROFEN AXETIL
     Dosage: 50 MG, BID
     Dates: start: 20131126, end: 20131225
  2. ATOVAQUONE. [Suspect]
     Active Substance: ATOVAQUONE
     Indication: ANTIFUNGAL PROPHYLAXIS
     Dosage: 1500 MG, QD
     Route: 048
     Dates: start: 20130627, end: 20131225

REACTIONS (3)
  - Pleural effusion [Recovering/Resolving]
  - Pneumonia aspiration [Not Recovered/Not Resolved]
  - Lung abscess [Recovering/Resolving]

NARRATIVE: CASE EVENT DATE: 20131126
